FAERS Safety Report 16449506 (Version 1)
Quarter: 2019Q2

REPORT INFORMATION
  Report Type: Spontaneous
  Country: US (occurrence: US)
  Receive Date: 20190619
  Receipt Date: 20190619
  Transmission Date: 20190711
  Serious: No
  Sender: FDA-Public Use
  Company Number: US-ROCHE-2270367

PATIENT

DRUGS (10)
  1. METHOTREXATE ORAL [Concomitant]
     Active Substance: METHOTREXATE
     Route: 048
  2. ARAVA [Concomitant]
     Active Substance: LEFLUNOMIDE
  3. ENBREL [Concomitant]
     Active Substance: ETANERCEPT
  4. ORENCIA [Concomitant]
     Active Substance: ABATACEPT
  5. RITUXAN [Concomitant]
     Active Substance: RITUXIMAB
     Route: 065
  6. XELJANZ [Concomitant]
     Active Substance: TOFACITINIB CITRATE
     Route: 048
  7. ACTEMRA [Suspect]
     Active Substance: TOCILIZUMAB
     Indication: RHEUMATOID ARTHRITIS
     Route: 065
  8. REMICADE [Concomitant]
     Active Substance: INFLIXIMAB
  9. METHOTREXATE INJECTION [Concomitant]
     Active Substance: METHOTREXATE
     Route: 065
  10. HUMIRA [Concomitant]
     Active Substance: ADALIMUMAB

REACTIONS (2)
  - No adverse event [Unknown]
  - Drug ineffective [Unknown]
